FAERS Safety Report 11151197 (Version 2)
Quarter: 2015Q2

REPORT INFORMATION
  Report Type: Spontaneous
  Country: US (occurrence: None)
  Receive Date: 20150528
  Receipt Date: 20150616
  Transmission Date: 20150821
  Serious: Yes (Hospitalization)
  Sender: FDA-Public Use
  Company Number: KAD201505-001323

PATIENT
  Sex: Male
  Weight: 104.3 kg

DRUGS (9)
  1. STARLIX [Concomitant]
     Active Substance: NATEGLINIDE
  2. AMLODIPINE [Concomitant]
     Active Substance: AMLODIPINE BESYLATE
  3. CLONIDINE. [Concomitant]
     Active Substance: CLONIDINE
  4. CIALIS [Concomitant]
     Active Substance: TADALAFIL
  5. RIBAVIRIN (RIBAVIRIN) [Suspect]
     Active Substance: RIBAVIRIN
     Indication: HEPATITIS C
     Route: 048
     Dates: start: 20150320, end: 20150406
  6. LOSARTAN (LOSARTAN) (LOSARTAN) [Concomitant]
     Active Substance: LOSARTAN
  7. DOXAZOSIN [Concomitant]
     Active Substance: DOXAZOSIN\DOXAZOSIN MESYLATE
  8. POTASSIUM [Concomitant]
     Active Substance: POTASSIUM
  9. VIEKIRA PAK [Suspect]
     Active Substance: DASABUVIR\OMBITASVIR\PARITAPREVIR\RITONAVIR
     Indication: HEPATITIS C
     Route: 048
     Dates: start: 20150320, end: 20150511

REACTIONS (3)
  - Blood creatinine increased [None]
  - Pneumonia [None]
  - Gout [None]

NARRATIVE: CASE EVENT DATE: 2015
